FAERS Safety Report 16378694 (Version 1)
Quarter: 2019Q2

REPORT INFORMATION
  Report Type: Spontaneous
  Country: US (occurrence: US)
  Receive Date: 20190416
  Receipt Date: 20190416
  Transmission Date: 20190711
  Serious: Yes (Hospitalization)
  Sender: FDA-Public Use
  Company Number: None

PATIENT
  Sex: Female

DRUGS (2)
  1. ENBREL [Suspect]
     Active Substance: ETANERCEPT
     Indication: RHEUMATOID ARTHRITIS
     Dosage: ?          OTHER FREQUENCY:EVERY WEEK;?
     Route: 058
  2. ELIQUIS [Concomitant]
     Active Substance: APIXABAN
     Dates: start: 20190415

REACTIONS (4)
  - Pain [None]
  - Respiration abnormal [None]
  - Mobility decreased [None]
  - Thrombosis [None]
